FAERS Safety Report 7587129-4 (Version None)
Quarter: 2011Q3

REPORT INFORMATION
  Report Type: 
  Country: None (occurrence: None)
  Receive Date: 20110701
  Receipt Date: 20110627
  Transmission Date: 20111222
  Serious: Yes (Other)
  Sender: FDA-Public Use
  Company Number: PHHY2011US51688

PATIENT
  Sex: Female
  Weight: 80 kg

DRUGS (1)
  1. FANAPT [Suspect]
     Indication: PSYCHOTIC DISORDER
     Dosage: 6 MG, BID
     Route: 048
     Dates: start: 20110607, end: 20110610

REACTIONS (4)
  - MUSCLE RIGIDITY [None]
  - LIMB DISCOMFORT [None]
  - PARKINSON'S DISEASE [None]
  - MUSCULOSKELETAL STIFFNESS [None]
